FAERS Safety Report 5565011-1 (Version None)
Quarter: 2007Q4

REPORT INFORMATION
  Report Type: 
  Country: None (occurrence: None)
  Receive Date: 20071218
  Receipt Date: 20071214
  Transmission Date: 20080405
  Serious: Yes (Other)
  Sender: FDA-Public Use
  Company Number: HQWYE979512JUL04

PATIENT
  Sex: Female

DRUGS (2)
  1. PREMARIN [Suspect]
  2. MEDROXYPROGESTERONE ACETATE [Suspect]

REACTIONS (3)
  - DEEP VEIN THROMBOSIS [None]
  - LACUNAR INFARCTION [None]
  - TRANSIENT ISCHAEMIC ATTACK [None]
